FAERS Safety Report 4500764-2 (Version None)
Quarter: 2004Q4

REPORT INFORMATION
  Report Type: 
  Country: None (occurrence: None)
  Receive Date: 20041112
  Receipt Date: 20041112
  Transmission Date: 20050328
  Serious: Yes (Death)
  Sender: FDA-Public Use
  Company Number: None

PATIENT

DRUGS (1)
  1. ENBREL [Suspect]

REACTIONS (6)
  - CELLULITIS [None]
  - CHILLS [None]
  - INFECTED SKIN ULCER [None]
  - NECROTISING FASCIITIS [None]
  - PYREXIA [None]
  - REFUSAL OF TREATMENT BY PATIENT [None]
